FAERS Safety Report 6209291-8 (Version None)
Quarter: 2009Q2

REPORT INFORMATION
  Report Type: 
  Country: None (occurrence: None)
  Receive Date: 20090529
  Receipt Date: 20090520
  Transmission Date: 20091009
  Serious: Yes (Hospitalization)
  Sender: FDA-Public Use
  Company Number: AR-AMGEN-US348626

PATIENT
  Sex: Female
  Weight: 48 kg

DRUGS (4)
  1. ENBREL [Suspect]
     Indication: RHEUMATOID ARTHRITIS
     Route: 058
     Dates: start: 20060802
  2. OMEPRAZOLE [Concomitant]
     Indication: PROPHYLAXIS
     Route: 048
  3. DICLOFENAC SODIUM [Concomitant]
     Indication: PAIN
     Route: 048
  4. DICLOFENAC SODIUM [Concomitant]
     Indication: INFLAMMATION

REACTIONS (3)
  - ANAEMIA MEGALOBLASTIC [None]
  - HAEMOLYTIC ANAEMIA [None]
  - SPINAL DISORDER [None]
